FAERS Safety Report 9461408 (Version 1)
Quarter: 2013Q3

REPORT INFORMATION
  Report Type: Spontaneous
  Country: US (occurrence: None)
  Receive Date: 20130814
  Receipt Date: 20130814
  Transmission Date: 20140515
  Serious: Yes (Other)
  Sender: FDA-Public Use
  Company Number: None

PATIENT
  Age: 71 Year
  Sex: Male
  Weight: 141 kg

DRUGS (12)
  1. TAMSULOSIN [Suspect]
     Indication: PROSTATOMEGALY
     Route: 048
     Dates: start: 20130501, end: 20130714
  2. CARVEDILOL [Concomitant]
  3. SIMVASTATIN [Concomitant]
  4. DIGOXIN [Concomitant]
  5. BABY ASPIRIN [Concomitant]
  6. NIACIN [Concomitant]
  7. FISH OIL [Concomitant]
  8. FLAX OIL [Concomitant]
  9. MULTI VIT [Concomitant]
  10. VIT D [Concomitant]
  11. VIT C [Concomitant]
  12. ZINC [Concomitant]

REACTIONS (1)
  - No adverse event [None]
